FAERS Safety Report 18801911 (Version 1)
Quarter: 2021Q1

REPORT INFORMATION
  Report Type: Spontaneous
  Country: IT (occurrence: IT)
  Receive Date: 20210128
  Receipt Date: 20210128
  Transmission Date: 20210419
  Serious: Yes (Hospitalization, Other)
  Sender: FDA-Public Use
  Company Number: IT-PURDUE-USA-2021-0201287

PATIENT
  Age: 42 Year
  Sex: Female

DRUGS (3)
  1. TRITTICO [Suspect]
     Active Substance: TRAZODONE HYDROCHLORIDE
     Indication: PRODUCT USED FOR UNKNOWN INDICATION
     Dosage: 30 ML, UNK [TOTAL; ADDITIONAL INFO: OVERDOSE]
     Route: 048
     Dates: start: 20200311, end: 20200311
  2. OXYCONTIN [Suspect]
     Active Substance: OXYCODONE HYDROCHLORIDE
     Indication: PRODUCT USED FOR UNKNOWN INDICATION
     Dosage: 40 MG, UNK [TOTAL; STRENGTH 20MG; ADDITIONAL INFO: OVERDOSE]
     Route: 048
     Dates: start: 20200311, end: 20200311
  3. RIVOTRIL [Suspect]
     Active Substance: CLONAZEPAM
     Indication: PRODUCT USED FOR UNKNOWN INDICATION
     Dosage: 10 ML, UNK [TOTAL; ADDITIONAL INFO: OVERDOSE]
     Route: 048
     Dates: start: 20200311, end: 20200311

REACTIONS (4)
  - Intentional overdose [Recovered/Resolved]
  - Substance abuse [Recovered/Resolved]
  - Coma [Recovered/Resolved]
  - Hospitalisation [Recovered/Resolved]
